FAERS Safety Report 7828148-X (Version None)
Quarter: 2011Q4

REPORT INFORMATION
  Report Type: 
  Country: None (occurrence: None)
  Receive Date: 20111020
  Receipt Date: 20111011
  Transmission Date: 20120403
  Serious: Yes (Hospitalization)
  Sender: FDA-Public Use
  Company Number: US-US-EMD SERONO, INC.-7089262

PATIENT
  Sex: Male

DRUGS (5)
  1. REBIF [Suspect]
     Indication: MULTIPLE SCLEROSIS
     Route: 058
     Dates: start: 20050301
  2. JANUVIA [Concomitant]
     Dates: start: 20110101
  3. LISINOPRIL [Concomitant]
  4. METOPROLOL TARTRATE [Concomitant]
  5. STEROIDS [Suspect]
     Indication: UHTHOFF'S PHENOMENON
     Route: 042
     Dates: start: 20110701, end: 20110701

REACTIONS (4)
  - BLOOD GLUCOSE INCREASED [None]
  - HEART RATE DECREASED [None]
  - UHTHOFF'S PHENOMENON [None]
  - HYPOTENSION [None]
